FAERS Safety Report 6038554-4 (Version None)
Quarter: 2009Q1

REPORT INFORMATION
  Report Type: 
  Country: None (occurrence: None)
  Receive Date: 20090115
  Receipt Date: 20090105
  Transmission Date: 20090719
  Serious: Yes (Hospitalization)
  Sender: FDA-Public Use
  Company Number: JP-EISAI MEDIAL RESEARCH-E3810-02448-SPO-JP

PATIENT
  Age: 71 Year
  Sex: Male

DRUGS (2)
  1. RABEPRAZOLE SODIUM [Suspect]
     Indication: DUODENAL ULCER
     Route: 048
     Dates: start: 19991014
  2. RABEPRAZOLE SODIUM [Suspect]
     Indication: HELICOBACTER INFECTION

REACTIONS (1)
  - PARATHYROID TUMOUR BENIGN [None]
